FAERS Safety Report 9730209 (Version 3)
Quarter: 2014Q1

REPORT INFORMATION
  Report Type: Spontaneous
  Country: BR (occurrence: BR)
  Receive Date: 20131204
  Receipt Date: 20140129
  Transmission Date: 20141002
  Serious: Yes (Life-Threatening, Other)
  Sender: FDA-Public Use
  Company Number: BR-ELI_LILLY_AND_COMPANY-BR201311009714

PATIENT
  Age: 41 Year
  Sex: Male
  Weight: 46 kg

DRUGS (5)
  1. HUMULIN N [Suspect]
     Indication: TYPE 1 DIABETES MELLITUS
     Dosage: 16 IU, EACH MORNING
     Route: 058
  2. HUMULIN N [Suspect]
     Dosage: 6 IU, EACH EVENING
     Route: 058
  3. HUMULIN R [Suspect]
     Indication: TYPE 1 DIABETES MELLITUS
     Dosage: UNK, UNKNOWN
     Route: 065
  4. PENTOXIFILINA [Suspect]
     Indication: PERIPHERAL VASCULAR DISORDER
     Dosage: UNK, QD
     Route: 065
  5. PENTOXIFILINA [Suspect]
     Indication: PERIPHERAL VASCULAR DISORDER
     Dosage: UNK, TID
     Route: 065
     Dates: start: 201310

REACTIONS (4)
  - Hypoglycaemia [Unknown]
  - Cyst [Recovered/Resolved]
  - Retinal haemorrhage [Recovered/Resolved]
  - Blood glucose abnormal [Unknown]
